FAERS Safety Report 4809297-7 (Version None)
Quarter: 2005Q4

REPORT INFORMATION
  Report Type: 
  Country: None (occurrence: None)
  Receive Date: 20051021
  Receipt Date: 20051019
  Transmission Date: 20060501
  Serious: Yes (Hospitalization)
  Sender: FDA-Public Use
  Company Number: 200513119BCC

PATIENT
  Age: 73 Year
  Sex: Male
  Weight: 96.1626 kg

DRUGS (7)
  1. ALEVE [Suspect]
     Indication: ARTHRALGIA
     Dosage: SEE IMAGE
     Dates: start: 20050101
  2. ALEVE [Suspect]
     Indication: PAIN IN EXTREMITY
     Dosage: SEE IMAGE
     Dates: start: 20050101
  3. ALEVE [Suspect]
     Indication: ARTHRALGIA
     Dosage: SEE IMAGE
     Dates: start: 20050101
  4. ALEVE [Suspect]
     Indication: PAIN IN EXTREMITY
     Dosage: SEE IMAGE
     Dates: start: 20050101
  5. LASIX [Suspect]
     Dosage: 40 MG, BID,
  6. BUPROPION HCL [Concomitant]
  7. COREG [Concomitant]

REACTIONS (2)
  - DEHYDRATION [None]
  - OVERDOSE [None]
